FAERS Safety Report 8536179-X (Version None)
Quarter: 2012Q3

REPORT INFORMATION
  Report Type: 
  Country: None (occurrence: None)
  Receive Date: 20120725
  Receipt Date: 20120718
  Transmission Date: 20120928
  Serious: No
  Sender: FDA-Public Use
  Company Number: US-009507513-1207USA008192

PATIENT

DRUGS (8)
  1. CYANOCOBALAMIN [Concomitant]
  2. RIBASPHERE [Suspect]
  3. VITAMIN E [Concomitant]
  4. PYRIDOXINE HCL [Concomitant]
  5. VICTRELIS [Suspect]
     Route: 048
  6. ASCORBIC ACID [Concomitant]
  7. PEG-INTRON [Suspect]
     Indication: HEPATITIS C
     Dosage: 120 MICROGRAM, QW
     Route: 058
     Dates: start: 20120301
  8. FLAXSEED [Concomitant]

REACTIONS (11)
  - WEIGHT DECREASED [None]
  - VISION BLURRED [None]
  - RASH GENERALISED [None]
  - ARTHRALGIA [None]
  - ALOPECIA [None]
  - PAIN [None]
  - TEMPERATURE INTOLERANCE [None]
  - NAUSEA [None]
  - ANAEMIA [None]
  - FATIGUE [None]
  - DEPRESSION [None]
